FAERS Safety Report 4479647-2 (Version None)
Quarter: 2004Q4

REPORT INFORMATION
  Report Type: 
  Country: None (occurrence: None)
  Receive Date: 20041018
  Receipt Date: 20041006
  Transmission Date: 20050328
  Serious: Yes (Death, Hospitalization)
  Sender: FDA-Public Use
  Company Number: 009-20785-04100287

PATIENT
  Age: 59 Year
  Sex: Female

DRUGS (3)
  1. THALIDOMIDE              (THALIDOMIDE) [Suspect]
     Indication: MULTIPLE MYELOMA
     Dosage: 200 MG, QD; ORAL
     Route: 048
     Dates: start: 20020601
  2. DEXAMETHASONE [Suspect]
     Indication: MULTIPLE MYELOMA
     Dosage: 40 MG, QD; UNKNOWN
  3. EPOGEN [Concomitant]

REACTIONS (17)
  - CARDIOMEGALY [None]
  - DISSEMINATED INTRAVASCULAR COAGULATION [None]
  - FATIGUE [None]
  - GENERAL PHYSICAL HEALTH DETERIORATION [None]
  - HYPERKALAEMIA [None]
  - HYPOGAMMAGLOBULINAEMIA [None]
  - INFECTION IN AN IMMUNOCOMPROMISED HOST [None]
  - LACTIC ACIDOSIS [None]
  - LUNG INFECTION PSEUDOMONAL [None]
  - LUNG INFILTRATION [None]
  - PANCYTOPENIA [None]
  - PLEURAL EFFUSION [None]
  - PNEUMONIA [None]
  - RENAL FAILURE ACUTE [None]
  - RESPIRATORY FAILURE [None]
  - SELF-MEDICATION [None]
  - SEPTIC SHOCK [None]
